FAERS Safety Report 4932480-7 (Version None)
Quarter: 2006Q1

REPORT INFORMATION
  Report Type: 
  Country: None (occurrence: None)
  Receive Date: 20060301
  Receipt Date: 20060217
  Transmission Date: 20060701
  Serious: Yes (Death, Hospitalization)
  Sender: FDA-Public Use
  Company Number: A001-320-844

PATIENT
  Age: 58 Year
  Sex: Male
  Weight: 72.5 kg

DRUGS (11)
  1. DONEPEZIL HCL [Suspect]
     Indication: VASCULAR DEMENTIA
     Dosage: 5 MG, 1 IN 1 D, ORAL
     Route: 048
     Dates: start: 20050421, end: 20060209
  2. DONEPEZIL HCL [Suspect]
     Indication: VASCULAR DEMENTIA
     Dosage: DOUBLEBLIND, 1 IN 1 D, ORAL
     Route: 048
     Dates: start: 20041103, end: 20050420
  3. METFORMIN HCL [Concomitant]
  4. GLICLAZIDE (GLICLAZIDE) [Concomitant]
  5. ASPIRIN [Concomitant]
  6. HYDROCHLOROTHIAZIDE [Concomitant]
  7. ENALAPRIL MALEATE [Concomitant]
  8. ADALAT XL (NIFEDIPINE) [Concomitant]
  9. ATENOLOL [Concomitant]
  10. FLUOXETINE [Concomitant]
  11. SIMVASTATIN [Concomitant]

REACTIONS (7)
  - BLOOD PRESSURE INADEQUATELY CONTROLLED [None]
  - CEREBRAL HAEMORRHAGE [None]
  - CONTUSION [None]
  - DIABETES MELLITUS INADEQUATE CONTROL [None]
  - FALL [None]
  - HEART RATE INCREASED [None]
  - SUBDURAL HAEMORRHAGE [None]
